FAERS Safety Report 9667217 (Version 1)
Quarter: 2013Q4

REPORT INFORMATION
  Report Type: Spontaneous
  Country: US (occurrence: US)
  Receive Date: 20131104
  Receipt Date: 20131104
  Transmission Date: 20140711
  Serious: No
  Sender: FDA-Public Use
  Company Number: US-BIOGENIDEC-2013BI090393

PATIENT
  Age: 35 Year
  Sex: Female

DRUGS (8)
  1. TECFIDERA [Suspect]
     Indication: PRODUCT USED FOR UNKNOWN INDICATION
     Dates: start: 20130907
  2. TECFIDERA [Suspect]
     Indication: PRODUCT USED FOR UNKNOWN INDICATION
     Route: 048
  3. TECFIDERA [Suspect]
     Indication: PRODUCT USED FOR UNKNOWN INDICATION
     Route: 048
  4. SINGULAIR CHW [Concomitant]
  5. ALLEGRA ODT [Concomitant]
  6. AMANTADINE [Concomitant]
  7. ADVAIR HFA [Concomitant]
  8. PROAIR HFA [Concomitant]

REACTIONS (12)
  - Heart rate increased [Unknown]
  - Dizziness [Unknown]
  - Prescribed underdose [Unknown]
  - Flushing [Unknown]
  - Pruritus generalised [Unknown]
  - Rash papular [Not Recovered/Not Resolved]
  - Nausea [Unknown]
  - Erythema [Unknown]
  - Pruritus [Unknown]
  - Feeling hot [Unknown]
  - Vomiting [Unknown]
  - Rash [Unknown]
